FAERS Safety Report 5282781-0 (Version None)
Quarter: 2007Q1

REPORT INFORMATION
  Report Type: 
  Country: None (occurrence: None)
  Receive Date: 20070329
  Receipt Date: 20070329
  Transmission Date: 20070707
  Serious: No
  Sender: FDA-Public Use
  Company Number: None

PATIENT
  Sex: Female
  Weight: 63.5036 kg

DRUGS (2)
  1. OXYCODONE ER 80MG PURDUE [Suspect]
     Indication: LEG AMPUTATION
     Dosage: 60  1/1 Q 12HRS  PO
     Route: 048
     Dates: start: 20060101
  2. OXYCODONE ER 80MG TIVA [Suspect]
     Indication: LEG AMPUTATION
     Dosage: 60  1/1 Q 12HRS  PO
     Route: 048
     Dates: start: 20060101

REACTIONS (4)
  - DIARRHOEA [None]
  - HYPERHIDROSIS [None]
  - NAUSEA [None]
  - VOMITING [None]
